FAERS Safety Report 17218781 (Version 1)
Quarter: 2020Q1

REPORT INFORMATION
  Report Type: Spontaneous
  Country: US (occurrence: US)
  Receive Date: 20191230
  Receipt Date: 20191230
  Transmission Date: 20200409
  Serious: Yes (Death)
  Sender: FDA-Public Use
  Company Number: None

PATIENT
  Sex: Male
  Weight: 67.5 kg

DRUGS (3)
  1. LEVETIRACETAM ORAL SOLUTION [Suspect]
     Active Substance: LEVETIRACETAM
     Indication: NEOPLASM MALIGNANT
     Dosage: ?          QUANTITY:15 ML;?
     Route: 048
     Dates: start: 20191205, end: 20191221
  2. DILANTIN [Concomitant]
     Active Substance: PHENYTOIN
  3. KEPPRA [Concomitant]
     Active Substance: LEVETIRACETAM

REACTIONS (1)
  - Recalled product administered [None]
